FAERS Safety Report 12309337 (Version 1)
Quarter: 2016Q2

REPORT INFORMATION
  Report Type: Spontaneous
  Country: US (occurrence: None)
  Receive Date: 20160426
  Receipt Date: 20160426
  Transmission Date: 20160815
  Serious: No
  Sender: FDA-Public Use
  Company Number: None

PATIENT
  Sex: Male

DRUGS (3)
  1. TOUJEO [Suspect]
     Active Substance: INSULIN GLARGINE
  2. GLYBURIDE. [Suspect]
     Active Substance: GLYBURIDE
  3. VICTOZA [Suspect]
     Active Substance: LIRAGLUTIDE

REACTIONS (2)
  - Weight increased [None]
  - Hunger [None]
